FAERS Safety Report 9263484 (Version 1)
Quarter: 2013Q2

REPORT INFORMATION
  Report Type: Spontaneous
  Country: US (occurrence: US)
  Receive Date: 20130430
  Receipt Date: 20130430
  Transmission Date: 20140414
  Serious: No
  Sender: FDA-Public Use
  Company Number: US-ABBOTT-13P-163-1072558-00

PATIENT
  Age: 55 Year
  Sex: Male
  Weight: 84.9 kg

DRUGS (3)
  1. CREON [Suspect]
     Indication: MALABSORPTION
     Dosage: 3 WITH EACH MEAL, 2 WITH A SNACK
     Dates: start: 201202
  2. LORTAB [Concomitant]
     Indication: BACK PAIN
  3. MULTIVITAMIN [Concomitant]
     Indication: PRODUCT USED FOR UNKNOWN INDICATION

REACTIONS (1)
  - Abdominal pain upper [Unknown]
